FAERS Safety Report 21494796 (Version 2)
Quarter: 2022Q4

REPORT INFORMATION
  Report Type: Report from Study
  Country: US (occurrence: US)
  Receive Date: 20221021
  Receipt Date: 20221119
  Transmission Date: 20230112
  Serious: No
  Sender: FDA-Public Use
  Company Number: US-ABBVIE-4141643

PATIENT
  Sex: Female

DRUGS (1)
  1. IMBRUVICA [Suspect]
     Active Substance: IBRUTINIB
     Indication: Chronic lymphocytic leukaemia
     Route: 048
     Dates: start: 202206

REACTIONS (8)
  - Feeling abnormal [Unknown]
  - Hypertension [Unknown]
  - Fatigue [Unknown]
  - Urinary retention [Unknown]
  - Anaemia [Recovered/Resolved]
  - Dyspepsia [Unknown]
  - Weight decreased [Unknown]
  - Splenomegaly [Recovering/Resolving]

NARRATIVE: CASE EVENT DATE: 20220101
